FAERS Safety Report 4645310-8 (Version None)
Quarter: 2005Q2

REPORT INFORMATION
  Report Type: 
  Country: None (occurrence: None)
  Receive Date: 20050331
  Receipt Date: 20050223
  Transmission Date: 20051028
  Serious: No
  Sender: FDA-Public Use
  Company Number: 05P-163-0291785-00

PATIENT
  Age: 78 Year
  Sex: Female
  Weight: 49.8957 kg

DRUGS (13)
  1. HUMIRA [Suspect]
     Indication: RHEUMATOID ARTHRITIS
     Dosage: 40 MG, 1 IN 2 WK, SUBCUTANEOUS
     Route: 058
     Dates: start: 20040201, end: 20040823
  2. LEVOTHYROXINE SODIUM [Concomitant]
  3. HYDROXYCHLOROQUINE PHOSPHATE [Concomitant]
  4. PREDNISONE [Concomitant]
  5. RANITIDINE [Concomitant]
  6. CYANOCOBALAMIN [Concomitant]
  7. IRON [Concomitant]
  8. CALCIUM GLUCONATE [Concomitant]
  9. VITAMINS [Concomitant]
  10. ASCORBIC ACID [Concomitant]
  11. TOCOPHEROL CONCENTRATE CAP [Concomitant]
  12. FISH OIL [Concomitant]
  13. FOLIC ACID [Concomitant]

REACTIONS (5)
  - INJECTION SITE IRRITATION [None]
  - JOINT SWELLING [None]
  - RASH ERYTHEMATOUS [None]
  - RASH PRURITIC [None]
  - SPINAL COMPRESSION FRACTURE [None]
